FAERS Safety Report 17720017 (Version 15)
Quarter: 2022Q2

REPORT INFORMATION
  Report Type: Spontaneous
  Country: US (occurrence: US)
  Receive Date: 20200428
  Receipt Date: 20220517
  Transmission Date: 20220721
  Serious: No
  Sender: FDA-Public Use
  Company Number: US-PFIZER INC-2020165914

PATIENT
  Age: 43 Year
  Sex: Female
  Weight: 59.87 kg

DRUGS (6)
  1. XELJANZ [Interacting]
     Active Substance: TOFACITINIB CITRATE
     Indication: Alopecia
     Dosage: 5 MG, 2X/DAY
     Route: 048
     Dates: start: 20200424, end: 2020
  2. XELJANZ [Interacting]
     Active Substance: TOFACITINIB CITRATE
     Indication: Alopecia universalis
     Dosage: 5 MG, 2X/DAY
     Route: 048
     Dates: start: 2020
  3. XELJANZ [Interacting]
     Active Substance: TOFACITINIB CITRATE
     Indication: Autoimmune disorder
     Dosage: UNK
  4. XELJANZ [Interacting]
     Active Substance: TOFACITINIB CITRATE
     Indication: Alopecia areata
  5. JANSSEN COVID-19 VACCINE [Suspect]
     Active Substance: AD26.COV2.S
     Indication: COVID-19 immunisation
     Dosage: UNKNOWN, SINGLE DOSE
  6. ACETAMINOPHEN\ASCORBIC ACID [Concomitant]
     Active Substance: ACETAMINOPHEN\ASCORBIC ACID
     Dosage: 180 MG

REACTIONS (7)
  - Drug ineffective [Unknown]
  - Off label use [Unknown]
  - Drug effective for unapproved indication [Unknown]
  - Labelled drug-food interaction medication error [Unknown]
  - Pain [Unknown]
  - COVID-19 [Recovered/Resolved]
  - Condition aggravated [Unknown]

NARRATIVE: CASE EVENT DATE: 20200101
